FAERS Safety Report 20280519 (Version 1)
Quarter: 2022Q1

REPORT INFORMATION
  Report Type: Spontaneous
  Country: ES (occurrence: ES)
  Receive Date: 20220103
  Receipt Date: 20220103
  Transmission Date: 20220423
  Serious: Yes (Hospitalization, Other)
  Sender: FDA-Public Use
  Company Number: None

PATIENT
  Age: 40 Year
  Sex: Female

DRUGS (3)
  1. QUETIAPINE [Suspect]
     Active Substance: QUETIAPINE
     Indication: Product used for unknown indication
     Dosage: 5250 MILLIGRAM, TOTAL 21 QUETIAPINE 250 MG TABLETS
     Route: 048
     Dates: start: 20210922, end: 20210922
  2. LITHIUM CARBONATE [Suspect]
     Active Substance: LITHIUM CARBONATE
     Indication: Product used for unknown indication
     Dosage: 4800 MILLIGRAM, TOTAL 12 TABLETS OF LITHIUM 400 MG
     Route: 048
     Dates: start: 20210922, end: 20210922
  3. CLONAZEPAM [Suspect]
     Active Substance: CLONAZEPAM
     Indication: Product used for unknown indication
     Dosage: 40 MILLIGRAM, TOTAL 20 TABLETS OF CLONAZEPAM 2 MG
     Route: 048
     Dates: start: 20210922, end: 20210922

REACTIONS (2)
  - Depressed level of consciousness [Recovered/Resolved]
  - Suicide attempt [Unknown]

NARRATIVE: CASE EVENT DATE: 20210922
